FAERS Safety Report 8023961-0 (Version None)
Quarter: 2011Q4

REPORT INFORMATION
  Report Type: 
  Country: None (occurrence: None)
  Receive Date: 20111230
  Receipt Date: 20111221
  Transmission Date: 20120403
  Serious: Yes (Hospitalization)
  Sender: FDA-Public Use
  Company Number: JPI-P-018889

PATIENT
  Age: 44 Year
  Sex: Female
  Weight: 68.0396 kg

DRUGS (2)
  1. UNSPECIFIED MEDICATIONS [Suspect]
  2. XYREM [Suspect]
     Indication: NARCOLEPSY
     Dosage: 11 GM (5.5 GM, 2 IN 1 D), ORAL
     Route: 048
     Dates: start: 20080123, end: 20090422

REACTIONS (5)
  - FOOD CRAVING [None]
  - CHEST PAIN [None]
  - HUNGER [None]
  - INSOMNIA [None]
  - MENTAL DISORDER [None]
